FAERS Safety Report 16975615 (Version 1)
Quarter: 2020Q3

REPORT INFORMATION
  Report Type: Spontaneous
  Country: US (occurrence: US)
  Receive Date: 20191030
  Receipt Date: 20191030
  Transmission Date: 20201104
  Serious: Yes (Other)
  Sender: FDA-Public Use
  Company Number: US-ROCHE-2448497

PATIENT
  Age: 58 Year
  Sex: Female
  Weight: 37.65 kg

DRUGS (3)
  1. LORBRENA [Concomitant]
     Active Substance: LORLATINIB
     Dosage: CALLER IS SUPPOSED TO TAKE AT 9:45 IN THE MORNING, 100 MG BY?MOUTH, ONCE PER DAY
     Route: 048
     Dates: start: 20191011
  2. ALECTINIB. [Suspect]
     Active Substance: ALECTINIB
     Indication: PRODUCT USED FOR UNKNOWN INDICATION
     Route: 065
     Dates: start: 2018
  3. ZYKADIA [Concomitant]
     Active Substance: CERITINIB
     Route: 065
     Dates: start: 201901, end: 201907

REACTIONS (1)
  - Migraine [Not Recovered/Not Resolved]

NARRATIVE: CASE EVENT DATE: 20191011
